FAERS Safety Report 5519687-5 (Version None)
Quarter: 2007Q4

REPORT INFORMATION
  Report Type: 
  Country: None (occurrence: None)
  Receive Date: 20071116
  Receipt Date: 20071107
  Transmission Date: 20080405
  Serious: Yes (Hospitalization)
  Sender: FDA-Public Use
  Company Number: IT-SANOFI-SYNTHELABO-A06200700552

PATIENT
  Sex: Female

DRUGS (1)
  1. ELOXATIN [Suspect]
     Indication: COLON CANCER
     Route: 041
     Dates: start: 20071106, end: 20071106

REACTIONS (7)
  - BACK PAIN [None]
  - CONFUSIONAL STATE [None]
  - NAUSEA [None]
  - PO2 DECREASED [None]
  - PYREXIA [None]
  - TREMOR [None]
  - VOMITING [None]
